FAERS Safety Report 16653476 (Version 6)
Quarter: 2020Q4

REPORT INFORMATION
  Report Type: Spontaneous
  Country: US (occurrence: US)
  Receive Date: 20190731
  Receipt Date: 20201002
  Transmission Date: 20210113
  Serious: Yes (Other)
  Sender: FDA-Public Use
  Company Number: US-PFIZER INC-2019325373

PATIENT
  Age: 52 Year
  Sex: Female
  Weight: 70 kg

DRUGS (9)
  1. IBRANCE [Suspect]
     Active Substance: PALBOCICLIB
     Dosage: 75 MG, CYCLIC (DAILY FOR 21 DAYS)
     Route: 048
     Dates: start: 20190727
  2. ANASTROZOLE. [Concomitant]
     Active Substance: ANASTROZOLE
     Dosage: 1 MG, DAILY
  3. VIT D [Concomitant]
     Active Substance: VITAMIN D NOS
     Dosage: UNK, 3X/DAY, [THREE TIMES DAILY WITH A MEAL]
  4. ANASTROZOLE. [Concomitant]
     Active Substance: ANASTROZOLE
     Dosage: UNK
     Dates: start: 2017
  5. IBRANCE [Suspect]
     Active Substance: PALBOCICLIB
     Dosage: 75 MG, CYCLIC (21 DAYS ON, 7 DAYS OFF, RESTARTS FOR 21 DAY CYCLE THEN OFF FOR 14 DAYS)
     Dates: start: 2017, end: 20200730
  6. CALCIUM [Concomitant]
     Active Substance: CALCIUM
     Dosage: UNK
  7. NATURE MADE CALCIUM MAGNESIUM ZINC [Concomitant]
     Dosage: UNK, 3X/DAY (TAKES IT THREE TIMES DAILY WITH A MEAL)
  8. CALTRATE 600+D3 PLUS MINERALS [BORON;CALCIUM;COLECALCIFEROL;COPPER;MAG [Concomitant]
     Dosage: UNK
  9. IBRANCE [Suspect]
     Active Substance: PALBOCICLIB
     Indication: BREAST CANCER
     Dosage: 100 MG, CYCLIC (100 MG, AT NIGHT TIME FOR 21 DAYS AND 7 DAYS OFF)

REACTIONS (8)
  - Neoplasm progression [Unknown]
  - Weight increased [Unknown]
  - Discomfort [Unknown]
  - Nervous system disorder [Unknown]
  - Gastrointestinal disorder [Unknown]
  - Fatigue [Unknown]
  - Loss of consciousness [Unknown]
  - Memory impairment [Unknown]
